FAERS Safety Report 7968155-X (Version None)
Quarter: 2011Q4

REPORT INFORMATION
  Report Type: 
  Country: None (occurrence: None)
  Receive Date: 20111209
  Receipt Date: 20111201
  Transmission Date: 20120403
  Serious: Yes (Other)
  Sender: FDA-Public Use
  Company Number: PHHY2011BR105675

PATIENT
  Age: 47 Year
  Sex: Male
  Weight: 86 kg

DRUGS (2)
  1. FORMOTEROL FUMARATE [Suspect]
     Indication: HYPERTENSION
     Dosage: 2 OT, QD
  2. FORMOTEROL FUMARATE [Suspect]
     Indication: DYSPNOEA

REACTIONS (3)
  - HYPERGLYCAEMIA [None]
  - VISION BLURRED [None]
  - DIABETES MELLITUS [None]
